FAERS Safety Report 16801863 (Version 1)
Quarter: 2019Q3

REPORT INFORMATION
  Report Type: Spontaneous
  Country: TW (occurrence: TW)
  Receive Date: 20190912
  Receipt Date: 20190912
  Transmission Date: 20191005
  Serious: Yes (Other)
  Sender: FDA-Public Use
  Company Number: PHHY2017TW119214

PATIENT
  Age: 53 Year
  Sex: Female

DRUGS (3)
  1. PALBOCICLIB [Suspect]
     Active Substance: PALBOCICLIB
     Indication: BREAST CANCER
     Dosage: UNK
     Route: 065
     Dates: start: 201610
  2. LETROZOLE. [Suspect]
     Active Substance: LETROZOLE
     Indication: BREAST CANCER
     Dosage: UNK
     Route: 065
     Dates: start: 201610
  3. TAMOXIFEN [Concomitant]
     Active Substance: TAMOXIFEN
     Indication: PRODUCT USED FOR UNKNOWN INDICATION
     Dosage: UNK
     Route: 065

REACTIONS (8)
  - Carbohydrate antigen 15-3 increased [Unknown]
  - Leukopenia [Unknown]
  - Breast cancer [Unknown]
  - Neutrophil count decreased [Unknown]
  - Anaemia [Unknown]
  - Malignant neoplasm progression [Unknown]
  - Carcinoembryonic antigen increased [Unknown]
  - Fatigue [Unknown]

NARRATIVE: CASE EVENT DATE: 201610
